FAERS Safety Report 10016726 (Version 1)
Quarter: 2014Q1

REPORT INFORMATION
  Report Type: Report from Study
  Country: AT (occurrence: AT)
  Receive Date: 20140318
  Receipt Date: 20140318
  Transmission Date: 20141002
  Serious: Yes (Other)
  Sender: FDA-Public Use
  Company Number: PHHY2014AT030640

PATIENT
  Age: 55 Year
  Sex: Male
  Weight: 83 kg

DRUGS (10)
  1. MYCOPHENOLIC ACID [Suspect]
     Dosage: 1080 MG, DAILY
     Dates: start: 20100504
  2. LOMIR [Concomitant]
     Indication: HYPERTENSION
     Dosage: 5 MG, BID
  3. BLOPRESS [Concomitant]
     Indication: HYPERTENSION
     Dosage: 8 MG, BID
  4. ZOCORD [Concomitant]
     Indication: HYPERLIPIDAEMIA
     Dosage: 20 MG, QD
  5. ROCALTROL [Concomitant]
     Indication: VITAMIN D DEFICIENCY
     Dosage: 0.25 MG, QD
  6. NEPHROTRANS [Concomitant]
     Indication: METABOLIC ACIDOSIS
  7. EUTHYROX [Concomitant]
     Indication: HYPOTHYROIDISM
     Dosage: 88 UG, QD
  8. EUTHYROX [Concomitant]
     Dosage: 100 UG, QD
  9. CONCOR [Concomitant]
     Indication: HYPERTENSION
     Dosage: 5 MG, BID
  10. DILATREND [Concomitant]
     Indication: HYPERTENSION
     Dosage: 25 MG, 2 X ?

REACTIONS (4)
  - Transient ischaemic attack [Unknown]
  - Blood creatinine increased [Unknown]
  - Blood glucose increased [Unknown]
  - Hyperlipidaemia [Unknown]
